FAERS Safety Report 15677251 (Version 2)
Quarter: 2018Q4

REPORT INFORMATION
  Report Type: Spontaneous
  Country: US (occurrence: US)
  Receive Date: 20181130
  Receipt Date: 20181221
  Transmission Date: 20190205
  Serious: Yes (Hospitalization)
  Sender: FDA-Public Use
  Company Number: US-FRESENIUS MEDICAL CARE RENAL THERAPIES GROUP-FMC-1811-002054

PATIENT
  Age: 56 Year
  Sex: Female

DRUGS (15)
  1. ARANESP [Concomitant]
     Active Substance: DARBEPOETIN ALFA
  2. CARVEDILOL. [Concomitant]
     Active Substance: CARVEDILOL
  3. DOCUSATE [Concomitant]
     Active Substance: DOCUSATE
  4. FERRIC CITRATE [Concomitant]
     Active Substance: TETRAFERRIC TRICITRATE DECAHYDRATE
  5. LANTHANUM [Concomitant]
     Active Substance: LANTHANUM
  6. ONDANSETRON [Concomitant]
     Active Substance: ONDANSETRON
  7. ERGOCALCIFEROL. [Concomitant]
     Active Substance: ERGOCALCIFEROL
  8. HYDRALAZINE [Concomitant]
     Active Substance: HYDRALAZINE HYDROCHLORIDE
  9. ACETAMINOPHEN. [Concomitant]
     Active Substance: ACETAMINOPHEN
  10. PRAVASTATIN. [Concomitant]
     Active Substance: PRAVASTATIN
  11. CALCIUM ACETATE. [Concomitant]
     Active Substance: CALCIUM ACETATE
  12. INSULIN [Concomitant]
     Active Substance: INSULIN NOS
  13. DELFLEX WITH DEXTROSE 2.5% LOW MAGNESIUM LOW CALCIUM [Suspect]
     Active Substance: CALCIUM CHLORIDE\DEXTROSE\MAGNESIUM CHLORIDE\SODIUM CHLORIDE\SODIUM LACTATE
     Indication: END STAGE RENAL DISEASE
     Route: 033
     Dates: start: 201710
  14. BISACODYL. [Concomitant]
     Active Substance: BISACODYL
  15. FERROUS SULFATE. [Concomitant]
     Active Substance: FERROUS SULFATE

REACTIONS (4)
  - Pulmonary oedema [Recovering/Resolving]
  - Product dose omission [Recovered/Resolved]
  - Hypoxia [Recovering/Resolving]
  - Fluid overload [Recovering/Resolving]

NARRATIVE: CASE EVENT DATE: 20181124
